FAERS Safety Report 8785376 (Version 6)
Quarter: 2013Q4

REPORT INFORMATION
  Report Type: Report from Study
  Country: JP (occurrence: JP)
  Receive Date: 20120914
  Receipt Date: 20131227
  Transmission Date: 20140711
  Serious: Yes (Other)
  Sender: FDA-Public Use
  Company Number: JP-VERTEX PHARMACEUTICAL INC.-2012-020879

PATIENT
  Age: 68 Year
  Sex: Female

DRUGS (14)
  1. VX-950 (TELAPREVIR) [Suspect]
     Indication: CHRONIC HEPATITIS C
     Dosage: 1500 MG, QD
     Route: 048
     Dates: start: 20120717, end: 20120918
  2. REBETOL [Suspect]
     Indication: CHRONIC HEPATITIS C
     Dosage: 400 MG, QD
     Route: 048
     Dates: start: 20120717, end: 20120918
  3. REBETOL [Suspect]
     Dosage: 200 MG, QD
     Route: 048
     Dates: start: 20120919, end: 20120925
  4. REBETOL [Suspect]
     Dosage: 400 MG, QD
     Route: 048
     Dates: start: 20121023, end: 20121231
  5. PEGINTRON [Suspect]
     Indication: CHRONIC HEPATITIS C
     Dosage: 1.5 ?G/KG, QW
     Route: 058
     Dates: start: 20120717, end: 20120731
  6. PEGINTRON [Suspect]
     Dosage: 50 ?G/BODY/QW
     Route: 058
     Dates: start: 20120807, end: 20120925
  7. PEGINTRON [Suspect]
     Dosage: 50 ?G/BODY/QW
     Route: 058
     Dates: start: 20121023, end: 20121107
  8. PEGINTRON [Suspect]
     Dosage: 30 ?G/BODY/QW
     Route: 058
     Dates: start: 20121113, end: 20121224
  9. PREDONINE [Concomitant]
     Dosage: 30 MG, QD
     Route: 048
     Dates: start: 20120720, end: 20120911
  10. PREDONINE [Concomitant]
     Dosage: 20 MG, QD
     Route: 048
     Dates: start: 20120912, end: 20120918
  11. PREDONINE [Concomitant]
     Dosage: 10 MG, QD
     Route: 048
     Dates: start: 20120919, end: 20120925
  12. GASTER [Concomitant]
     Dosage: 40 MG, QD
     Route: 048
     Dates: start: 20120720, end: 20120925
  13. ZYLORIC [Concomitant]
     Dosage: 200 MG, QD
     Route: 048
     Dates: start: 20120724, end: 20120925
  14. NU-LOTAN [Concomitant]
     Dosage: 25 MG, QD
     Route: 048

REACTIONS (3)
  - Rash [Recovered/Resolved]
  - Anaemia [Recovered/Resolved]
  - Neutrophil count decreased [Recovered/Resolved]
